FAERS Safety Report 8571191 (Version 8)
Quarter: 2013Q4

REPORT INFORMATION
  Report Type: Spontaneous
  Country: US (occurrence: US)
  Receive Date: 20120521
  Receipt Date: 20131025
  Transmission Date: 20140711
  Serious: Yes (Hospitalization, Other)
  Sender: FDA-Public Use
  Company Number: US-US-EMD SERONO, INC.-7132669

PATIENT
  Age: 46 Year
  Sex: Female
  Weight: 73 kg

DRUGS (5)
  1. REBIF [Suspect]
     Indication: MULTIPLE SCLEROSIS
     Route: 058
     Dates: start: 20100708, end: 20101101
  2. REBIF [Suspect]
     Route: 058
     Dates: start: 20110525
  3. LIDOCAINE [Concomitant]
     Indication: MUSCLE SPASMS
  4. TYLENOL [Concomitant]
     Indication: PREMEDICATION
  5. GLUCOPHAGE                         /00082701/ [Concomitant]
     Indication: TYPE 2 DIABETES MELLITUS

REACTIONS (19)
  - Fall [Recovering/Resolving]
  - Loss of consciousness [Recovering/Resolving]
  - Heart rate increased [Unknown]
  - Hypertension [Not Recovered/Not Resolved]
  - Pyrexia [Not Recovered/Not Resolved]
  - Intervertebral disc disorder [Recovering/Resolving]
  - Blood count abnormal [Recovered/Resolved]
  - Cardiomegaly [Unknown]
  - Atrial fibrillation [Not Recovered/Not Resolved]
  - Dysphagia [Not Recovered/Not Resolved]
  - Diplopia [Unknown]
  - Sensation of heaviness [Not Recovered/Not Resolved]
  - Muscle spasms [Unknown]
  - Musculoskeletal pain [Unknown]
  - Tinnitus [Unknown]
  - Vision blurred [Unknown]
  - Asthenia [Not Recovered/Not Resolved]
  - Fatigue [Not Recovered/Not Resolved]
  - Influenza like illness [Unknown]
